FAERS Safety Report 14748068 (Version 1)
Quarter: 2018Q2

REPORT INFORMATION
  Report Type: Spontaneous
  Country: DE (occurrence: DE)
  Receive Date: 20180411
  Receipt Date: 20180411
  Transmission Date: 20180711
  Serious: Yes (Congenital Anomaly, Other)
  Sender: FDA-Public Use
  Company Number: DE-MYLANLABS-2018M1022162

PATIENT
  Age: 1 Day
  Sex: Male
  Weight: 3.26 kg

DRUGS (3)
  1. UTROGEST [Concomitant]
     Active Substance: PROGESTERONE
     Indication: PROGESTERONE DECREASED
     Dosage: 100 [MG/D ]
     Route: 064
     Dates: start: 20161022, end: 20161023
  2. FRAGMIN [Concomitant]
     Active Substance: DALTEPARIN SODIUM
     Indication: FACTOR V LEIDEN MUTATION
     Dosage: UNK
     Route: 064
  3. METHOTREXATE. [Suspect]
     Active Substance: METHOTREXATE
     Indication: PRODUCT USED FOR UNKNOWN INDICATION
     Dosage: 15 [MG/D ]/ ONCE. RECEIVED MTX INSTEAD OF DALTEPARIN
     Route: 064
     Dates: start: 20161022, end: 20161022

REACTIONS (3)
  - Foetal exposure during pregnancy [Recovered/Resolved]
  - Anal atresia [Unknown]
  - Accidental exposure to product [Unknown]

NARRATIVE: CASE EVENT DATE: 20161022
